FAERS Safety Report 24829670 (Version 1)
Quarter: 2025Q1

REPORT INFORMATION
  Report Type: Spontaneous
  Country: US (occurrence: US)
  Receive Date: 20250110
  Receipt Date: 20250110
  Transmission Date: 20250409
  Serious: No
  Sender: MSN LABORATORIES PRIVATE LIMITED
  Company Number: US-MSNLABS-2025MSNSPO00025

PATIENT

DRUGS (1)
  1. LISDEXAMFETAMINE DIMESYLATE [Suspect]
     Active Substance: LISDEXAMFETAMINE DIMESYLATE
     Indication: Attention deficit hyperactivity disorder
     Dosage: 01 TABLET A DAY
     Route: 065
     Dates: start: 20241110, end: 20241230

REACTIONS (4)
  - Tongue discomfort [Unknown]
  - Skin burning sensation [Unknown]
  - Tongue eruption [Unknown]
  - Erythema [Unknown]

NARRATIVE: CASE EVENT DATE: 20241110
